FAERS Safety Report 4771688-0 (Version None)
Quarter: 2005Q3

REPORT INFORMATION
  Report Type: 
  Country: None (occurrence: None)
  Receive Date: 20050912
  Receipt Date: 20050826
  Transmission Date: 20060218
  Serious: Yes (Other)
  Sender: FDA-Public Use
  Company Number: THYM-10720

PATIENT

DRUGS (3)
  1. THYMOGLOBULIN [Suspect]
     Indication: STEM CELL TRANSPLANT
  2. FLUDARABINE PHOSPHATE [Concomitant]
  3. MELPHALAN [Concomitant]

REACTIONS (3)
  - EPSTEIN-BARR VIRUS INFECTION [None]
  - GRAFT VERSUS HOST DISEASE [None]
  - LYMPHOPROLIFERATIVE DISORDER [None]
